FAERS Safety Report 15741828 (Version 1)
Quarter: 2018Q4

REPORT INFORMATION
  Report Type: Spontaneous
  Country: GB (occurrence: GB)
  Receive Date: 20181219
  Receipt Date: 20181219
  Transmission Date: 20190205
  Serious: Yes (Death)
  Sender: FDA-Public Use
  Company Number: GB-TEVA-179100ISR

PATIENT
  Age: 70 Year
  Sex: Female

DRUGS (3)
  1. CISPLATIN. [Suspect]
     Active Substance: CISPLATIN
     Route: 042
     Dates: start: 20080917, end: 20080926
  2. EPIRUBICIN [Suspect]
     Active Substance: EPIRUBICIN
     Route: 065
     Dates: start: 20080917, end: 20080926
  3. CAPECITABINE. [Suspect]
     Active Substance: CAPECITABINE
     Route: 042
     Dates: start: 20080917, end: 20080926

REACTIONS (1)
  - Neutropenic sepsis [Fatal]

NARRATIVE: CASE EVENT DATE: 20080926
